FAERS Safety Report 25325976 (Version 3)
Quarter: 2025Q2

REPORT INFORMATION
  Report Type: Spontaneous
  Country: US (occurrence: US)
  Receive Date: 20250516
  Receipt Date: 20250610
  Transmission Date: 20250716
  Serious: Yes (Hospitalization, Other)
  Sender: ELI LILLY AND COMPANY
  Company Number: US-ELI_LILLY_AND_COMPANY-US202505004992

PATIENT

DRUGS (3)
  1. LYUMJEV [Suspect]
     Active Substance: INSULIN LISPRO-AABC
     Indication: Product used for unknown indication
     Route: 065
  2. TRESIBA [Concomitant]
     Active Substance: INSULIN DEGLUDEC
     Indication: Product used for unknown indication
  3. WARFARIN [Concomitant]
     Active Substance: WARFARIN
     Indication: Product used for unknown indication

REACTIONS (8)
  - Localised infection [Unknown]
  - Syncope [Unknown]
  - Pain [Unknown]
  - Insomnia [Unknown]
  - Hypertension [Unknown]
  - Eye contusion [Unknown]
  - Face injury [Unknown]
  - Eye swelling [Unknown]

NARRATIVE: CASE EVENT DATE: 20250529
